FAERS Safety Report 18794678 (Version 1)
Quarter: 2021Q1

REPORT INFORMATION
  Report Type: Spontaneous
  Country: US (occurrence: US)
  Receive Date: 20210127
  Receipt Date: 20210127
  Transmission Date: 20210419
  Serious: No
  Sender: FDA-Public Use
  Company Number: None

PATIENT
  Age: 40 Year
  Sex: Female
  Weight: 58.5 kg

DRUGS (6)
  1. PIMECROLIMUS CREAM, 1% [Suspect]
     Active Substance: PIMECROLIMUS
     Indication: DERMATITIS ATOPIC
     Dosage: ?          QUANTITY:1 APPLICATION;?
     Route: 061
     Dates: start: 20210126, end: 20210127
  2. PIMECROLIMUS CREAM, 1% [Suspect]
     Active Substance: PIMECROLIMUS
     Indication: ECZEMA
     Dosage: ?          QUANTITY:1 APPLICATION;?
     Route: 061
     Dates: start: 20210126, end: 20210127
  3. FISH OIL [Concomitant]
     Active Substance: FISH OIL
  4. TUMERIC [Concomitant]
     Active Substance: HERBALS\TURMERIC
  5. SERTRALINE [Concomitant]
     Active Substance: SERTRALINE HYDROCHLORIDE
  6. EQUATE ALLERGY RELIEF (CETIRIZINE HYDROCHLORIDE) [Concomitant]
     Active Substance: CETIRIZINE HYDROCHLORIDE

REACTIONS (2)
  - Application site pain [None]
  - Skin irritation [None]

NARRATIVE: CASE EVENT DATE: 20210127
